FAERS Safety Report 9207677 (Version 1)
Quarter: 2013Q1

REPORT INFORMATION
  Report Type: Spontaneous
  Country: US (occurrence: None)
  Receive Date: 20120719
  Receipt Date: 20120719
  Transmission Date: 20140127
  Serious: Yes (Disabling)
  Sender: FDA-Public Use
  Company Number: SP04180

PATIENT
  Age: 52 Year
  Sex: Male

DRUGS (1)
  1. XIFAXAN (TABLETS) [Suspect]
     Indication: HEPATIC ENCEPHALOPATHY
     Dosage: (550 MG, 2 IN 1 D)
     Route: 048
     Dates: start: 201108, end: 201108

REACTIONS (2)
  - Rash [None]
  - Oedema peripheral [None]
